FAERS Safety Report 18590386 (Version 3)
Quarter: 2021Q1

REPORT INFORMATION
  Report Type: Spontaneous
  Country: JP (occurrence: JP)
  Receive Date: 20201208
  Receipt Date: 20210107
  Transmission Date: 20210419
  Serious: Yes (Hospitalization)
  Sender: FDA-Public Use
  Company Number: JP-PFIZER INC-2020473923

PATIENT
  Age: 11 Year
  Sex: Male
  Weight: 70 kg

DRUGS (11)
  1. GENOTROPIN [Suspect]
     Active Substance: SOMATROPIN
     Dosage: 0.7, 7 TIMES/WEEK
     Route: 058
     Dates: start: 20160618, end: 20160922
  2. GENOTROPIN [Suspect]
     Active Substance: SOMATROPIN
     Dosage: 0.8, 7 TIMES/WEEK
     Route: 058
     Dates: start: 20160923, end: 20170525
  3. LEUPLIN [Suspect]
     Active Substance: LEUPROLIDE ACETATE
     Indication: PRECOCIOUS PUBERTY
     Dosage: 0.7 ML, MONTHLY
     Route: 058
     Dates: start: 20180629, end: 20190214
  4. GENOTROPIN [Suspect]
     Active Substance: SOMATROPIN
     Indication: DWARFISM
     Dosage: 0.6, 7 TIMES/WEEK
     Route: 058
     Dates: start: 20150911, end: 20160617
  5. GENOTROPIN [Suspect]
     Active Substance: SOMATROPIN
     Dosage: 1.05, 7 TIMES/WEEK
     Route: 058
     Dates: start: 20180111, end: 20181119
  6. GENOTROPIN [Suspect]
     Active Substance: SOMATROPIN
     Dosage: 1.35, 7 TIMES/WEEK
     Route: 058
     Dates: start: 20190830, end: 20200313
  7. GENOTROPIN [Suspect]
     Active Substance: SOMATROPIN
     Dosage: 1.65, 7 TIMES/WEEK
     Route: 058
     Dates: start: 20200314
  8. GENOTROPIN [Suspect]
     Active Substance: SOMATROPIN
     Dosage: 1.2, 7 TIMES/WEEK
     Route: 058
     Dates: start: 20181120, end: 20190829
  9. LEUPLIN [Suspect]
     Active Substance: LEUPROLIDE ACETATE
     Dosage: 0.8 ML, MONTHLY
     Route: 058
     Dates: start: 20190215, end: 20190830
  10. GENOTROPIN [Suspect]
     Active Substance: SOMATROPIN
     Indication: GROWTH HORMONE DEFICIENCY
     Dosage: 0.5, 7 TIMES/WEEK
     Route: 058
     Dates: start: 20140918, end: 20150910
  11. GENOTROPIN [Suspect]
     Active Substance: SOMATROPIN
     Dosage: 0.85, 7 TIMES/WEEK
     Route: 058
     Dates: start: 20170526, end: 20180110

REACTIONS (3)
  - Meniscus injury [Not Recovered/Not Resolved]
  - Obesity [Not Recovered/Not Resolved]
  - Precocious puberty [Recovered/Resolved]

NARRATIVE: CASE EVENT DATE: 20180614
